FAERS Safety Report 6073839-7 (Version None)
Quarter: 2009Q1

REPORT INFORMATION
  Report Type: 
  Country: None (occurrence: None)
  Receive Date: 20090209
  Receipt Date: 20090209
  Transmission Date: 20090719
  Serious: Yes (Hospitalization)
  Sender: FDA-Public Use
  Company Number: None

PATIENT
  Sex: Female
  Weight: 77.1115 kg

DRUGS (5)
  1. CEFEPIME [Suspect]
     Indication: ARTHRITIS BACTERIAL
     Dosage: 1 GRAM Q 12 HOURS IV
     Route: 042
     Dates: start: 20081007, end: 20081016
  2. VANCOMYCIN HCL [Concomitant]
  3. COUMADIN [Concomitant]
  4. LOVENOX [Concomitant]
  5. PEPCID [Concomitant]

REACTIONS (3)
  - DERMATITIS EXFOLIATIVE [None]
  - PYREXIA [None]
  - RASH [None]
